FAERS Safety Report 6944718-5 (Version None)
Quarter: 2010Q3

REPORT INFORMATION
  Report Type: 
  Country: None (occurrence: None)
  Receive Date: 20100827
  Receipt Date: 20100817
  Transmission Date: 20110219
  Serious: Yes (Other)
  Sender: FDA-Public Use
  Company Number: US-PFIZER INC-2010103480

PATIENT
  Sex: Female

DRUGS (1)
  1. CHANTIX [Suspect]
     Dosage: UNK
     Dates: start: 20070801

REACTIONS (22)
  - COLLAPSE OF LUNG [None]
  - COLON INJURY [None]
  - CONCUSSION [None]
  - CONVULSION [None]
  - DEEP VEIN THROMBOSIS [None]
  - DEPRESSION [None]
  - EMBOLISM VENOUS [None]
  - FOREARM FRACTURE [None]
  - ILEUS PARALYTIC [None]
  - ILIUM FRACTURE [None]
  - LIVER DISORDER [None]
  - LOSS OF CONSCIOUSNESS [None]
  - MESENTERIC VASCULAR INSUFFICIENCY [None]
  - OPEN WOUND [None]
  - PELVIC FRACTURE [None]
  - PUBIS FRACTURE [None]
  - PULMONARY EMBOLISM [None]
  - PULMONARY INFARCTION [None]
  - ROAD TRAFFIC ACCIDENT [None]
  - SMALL INTESTINAL ANASTOMOSIS [None]
  - SMALL INTESTINAL RESECTION [None]
  - VENA CAVA INJURY [None]
